FAERS Safety Report 7929993-2 (Version None)
Quarter: 2011Q4

REPORT INFORMATION
  Report Type: 
  Country: None (occurrence: None)
  Receive Date: 20111117
  Receipt Date: 20111108
  Transmission Date: 20120403
  Serious: No
  Sender: FDA-Public Use
  Company Number: 2011SP052571

PATIENT
  Age: 62 Year
  Sex: Female

DRUGS (5)
  1. RITALIN [Concomitant]
  2. XANAX [Concomitant]
  3. SAPHRIS [Suspect]
     Indication: BIPOLAR DISORDER
     Dosage: SL
     Route: 060
     Dates: start: 20110101
  4. PROZAC [Concomitant]
  5. WELLBUTRIN [Concomitant]

REACTIONS (7)
  - FEELING ABNORMAL [None]
  - COUGH [None]
  - DYSPHEMIA [None]
  - STARING [None]
  - WEIGHT INCREASED [None]
  - THROAT IRRITATION [None]
  - BLOOD GLUCOSE DECREASED [None]
